FAERS Safety Report 6916299-3 (Version None)
Quarter: 2010Q3

REPORT INFORMATION
  Report Type: 
  Country: None (occurrence: None)
  Receive Date: 20100810
  Receipt Date: 20100730
  Transmission Date: 20110219
  Serious: Yes (Other)
  Sender: FDA-Public Use
  Company Number: CN-PFIZER INC-2010091474

PATIENT
  Age: 30 Year
  Sex: Female

DRUGS (1)
  1. SULPERAZON [Suspect]
     Indication: INFLAMMATION
     Dosage: 3 G, 2X/DAY
     Route: 041

REACTIONS (2)
  - HAEMORRHAGIC DIATHESIS [None]
  - LIVIDITY [None]
